FAERS Safety Report 23606659 (Version 1)
Quarter: 2024Q1

REPORT INFORMATION
  Report Type: Spontaneous
  Country: US (occurrence: None)
  Receive Date: 20240307
  Receipt Date: 20240307
  Transmission Date: 20240410
  Serious: Yes (Other)
  Sender: FDA-Public Use
  Company Number: 2024A050076

PATIENT
  Sex: Female

DRUGS (2)
  1. SYMBICORT [Suspect]
     Active Substance: BUDESONIDE\FORMOTEROL FUMARATE DIHYDRATE
     Dosage: UNKNOWN UNKNOWN
     Route: 055
  2. POTASSIUM [Concomitant]
     Active Substance: POTASSIUM

REACTIONS (4)
  - Diabetic retinopathy [Unknown]
  - Eye haemorrhage [Unknown]
  - Ophthalmic vascular thrombosis [Unknown]
  - Blindness unilateral [Unknown]
